FAERS Safety Report 5871569-5 (Version None)
Quarter: 2008Q3

REPORT INFORMATION
  Report Type: 
  Country: None (occurrence: None)
  Receive Date: 20080905
  Receipt Date: 20080506
  Transmission Date: 20090109
  Serious: No
  Sender: FDA-Public Use
  Company Number: A0727723A

PATIENT
  Sex: Female

DRUGS (3)
  1. REQUIP [Suspect]
     Indication: DRUG USE FOR UNKNOWN INDICATION
     Route: 048
  2. MIRAPEX [Suspect]
     Indication: DRUG USE FOR UNKNOWN INDICATION
     Route: 048
  3. UNKNOWN [Concomitant]

REACTIONS (4)
  - COMPULSIVE SEXUAL BEHAVIOUR [None]
  - LIBIDO INCREASED [None]
  - QUALITY OF LIFE DECREASED [None]
  - SEXUAL DYSFUNCTION [None]
